FAERS Safety Report 6908919-4 (Version None)
Quarter: 2010Q3

REPORT INFORMATION
  Report Type: 
  Country: None (occurrence: None)
  Receive Date: 20100805
  Receipt Date: 20100729
  Transmission Date: 20110219
  Serious: Yes (Other)
  Sender: FDA-Public Use
  Company Number: GB-PFIZER INC-2010095328

PATIENT

DRUGS (1)
  1. FESOTERODINE [Suspect]
     Dosage: 8 MG, UNK

REACTIONS (1)
  - RENAL FAILURE [None]
